FAERS Safety Report 7305875-4 (Version None)
Quarter: 2011Q1

REPORT INFORMATION
  Report Type: 
  Country: None (occurrence: None)
  Receive Date: 20110222
  Receipt Date: 20110215
  Transmission Date: 20110831
  Serious: Yes (Hospitalization)
  Sender: FDA-Public Use
  Company Number: US-BRISTOL-MYERS SQUIBB COMPANY-15552615

PATIENT
  Age: 75 Year
  Sex: Male

DRUGS (10)
  1. CARBOPLATIN [Suspect]
     Indication: TRANSITIONAL CELL CARCINOMA
     Dosage: LAST DOSE PRIOR THE EVENT 31JAN11
     Dates: start: 20110110, end: 20110215
  2. GEMCITABINE [Suspect]
     Indication: TRANSITIONAL CELL CARCINOMA
     Dosage: 1 DF= 1680 MG; LAST DOSE PRIOR THE EVENT 31JAN11
     Dates: start: 20110110, end: 20110215
  3. ABRAXANE [Suspect]
     Indication: TRANSITIONAL CELL CARCINOMA
     Dosage: LAST DOSE PRIOR THE EVENT 31JAN11
     Dates: start: 20110110, end: 20110215
  4. VITAMIN D [Concomitant]
     Dosage: 1 DF=1000 UT
     Route: 048
  5. FLAXSEED OIL [Concomitant]
     Route: 048
  6. LECITHIN [Concomitant]
     Route: 048
  7. GLUCOTROL [Concomitant]
     Route: 048
  8. MULTI-VITAMINS [Concomitant]
     Route: 048
  9. ENALAPRIL [Concomitant]
     Route: 048
  10. SIMVASTATIN [Concomitant]
     Route: 048

REACTIONS (1)
  - SYNCOPE [None]
